FAERS Safety Report 5921090-0 (Version None)
Quarter: 2008Q4

REPORT INFORMATION
  Report Type: 
  Country: None (occurrence: None)
  Receive Date: 20081016
  Receipt Date: 20081007
  Transmission Date: 20090506
  Serious: Yes (Other)
  Sender: FDA-Public Use
  Company Number: JP-ASTRAZENECA-2008SE04799

PATIENT
  Age: 72 Year
  Sex: Male

DRUGS (6)
  1. BLOPRESS [Suspect]
     Route: 048
  2. FIRSTCIN [Suspect]
     Route: 042
  3. (SULTAMICILLIN TOSILATE) [Suspect]
     Route: 065
  4. CLINDAMYCIN HCL [Suspect]
     Route: 065
  5. (PAZUFLOXACIN) [Suspect]
     Route: 042
  6. (APRINDINE HYDROCHLORIDE) [Suspect]
     Indication: ATRIAL FIBRILLATION
     Route: 065

REACTIONS (1)
  - INTERSTITIAL LUNG DISEASE [None]
